FAERS Safety Report 25753994 (Version 2)
Quarter: 2025Q4

REPORT INFORMATION
  Report Type: Spontaneous
  Country: CN (occurrence: CN)
  Receive Date: 20250903
  Receipt Date: 20251229
  Transmission Date: 20260117
  Serious: Yes (Death)
  Sender: JOHNSON AND JOHNSON
  Company Number: CN-JNJFOC-20250901008

PATIENT
  Sex: Female

DRUGS (4)
  1. RYBREVANT [Suspect]
     Active Substance: AMIVANTAMAB-VMJW
     Indication: Product used for unknown indication
     Dates: start: 20250828
  2. RYBREVANT [Suspect]
     Active Substance: AMIVANTAMAB-VMJW
     Dates: start: 20250829
  3. DEXAMETHASONE [Suspect]
     Active Substance: DEXAMETHASONE
     Indication: Product used for unknown indication
     Route: 048
     Dates: start: 20250826
  4. DEXAMETHASONE [Suspect]
     Active Substance: DEXAMETHASONE
     Route: 048

REACTIONS (2)
  - Haematemesis [Fatal]
  - Haemarthrosis [Fatal]

NARRATIVE: CASE EVENT DATE: 20250831
